FAERS Safety Report 9554040 (Version 1)
Quarter: 2013Q3

REPORT INFORMATION
  Report Type: Spontaneous
  Country: CH (occurrence: CH)
  Receive Date: 20130925
  Receipt Date: 20130925
  Transmission Date: 20140515
  Serious: Yes (Life-Threatening, Hospitalization)
  Sender: FDA-Public Use
  Company Number: CH-GLAXOSMITHKLINE-B0925038A

PATIENT
  Age: 89 Year
  Sex: Female

DRUGS (5)
  1. ZINACEF [Suspect]
     Indication: PROPHYLACTIC CHEMOTHERAPY
     Dosage: 1.5G PER DAY
     Route: 040
     Dates: start: 20130412, end: 20130412
  2. VOLUVEN [Suspect]
     Indication: PRODUCT USED FOR UNKNOWN INDICATION
     Dosage: 250ML PER DAY
     Route: 040
     Dates: start: 20130412, end: 20130412
  3. SUGAMMADEX SODIUM [Suspect]
     Indication: PRODUCT USED FOR UNKNOWN INDICATION
     Dosage: 200MG PER DAY
     Route: 040
     Dates: start: 20130412, end: 20130412
  4. DISOPRIVAN [Suspect]
     Indication: PRODUCT USED FOR UNKNOWN INDICATION
     Route: 040
     Dates: start: 20130412, end: 20130412
  5. PARACETAMOL [Suspect]
     Indication: PRODUCT USED FOR UNKNOWN INDICATION
     Dosage: 1G PER DAY
     Route: 040
     Dates: start: 20130412

REACTIONS (4)
  - Type I hypersensitivity [Recovering/Resolving]
  - Angioedema [Recovering/Resolving]
  - Tongue oedema [Recovering/Resolving]
  - Speech disorder [Recovering/Resolving]
